FAERS Safety Report 6388691-X (Version None)
Quarter: 2009Q4

REPORT INFORMATION
  Report Type: 
  Country: None (occurrence: None)
  Receive Date: 20091005
  Receipt Date: 20091002
  Transmission Date: 20100525
  Serious: Yes (Hospitalization)
  Sender: FDA-Public Use
  Company Number: US-CUBIST-2009S1000312

PATIENT
  Sex: Male

DRUGS (3)
  1. CUBICIN [Suspect]
     Indication: OSTEOMYELITIS
     Route: 042
     Dates: start: 20090619
  2. INSULIN [Concomitant]
     Indication: DRUG USE FOR UNKNOWN INDICATION
  3. METFORMIN [Concomitant]
     Indication: DRUG USE FOR UNKNOWN INDICATION

REACTIONS (3)
  - HEADACHE [None]
  - LEUKOPENIA [None]
  - SYNCOPE [None]
